FAERS Safety Report 4449247-9 (Version None)
Quarter: 2004Q3

REPORT INFORMATION
  Report Type: 
  Country: None (occurrence: None)
  Receive Date: 20040910
  Receipt Date: 20040907
  Transmission Date: 20050211
  Serious: Yes (Other)
  Sender: FDA-Public Use
  Company Number: DEWYE900013JUL04

PATIENT
  Age: 38 Year
  Sex: Male

DRUGS (1)
  1. EFFEXOR XR [Suspect]
     Indication: DEPRESSION
     Dosage: 75 MG
     Route: 048

REACTIONS (5)
  - ALCOHOL USE [None]
  - DRUG ABUSER [None]
  - GRAND MAL CONVULSION [None]
  - INSOMNIA [None]
  - TONGUE BITING [None]
